FAERS Safety Report 17297901 (Version 1)
Quarter: 2020Q1

REPORT INFORMATION
  Report Type: Report from Study
  Country: FR (occurrence: FR)
  Receive Date: 20200121
  Receipt Date: 20200121
  Transmission Date: 20200409
  Serious: Yes (Hospitalization)
  Sender: FDA-Public Use
  Company Number: FR-JNJFOC-20200119348

PATIENT
  Age: 64 Year
  Sex: Male

DRUGS (25)
  1. METHOTREXATE. [Concomitant]
     Active Substance: METHOTREXATE
     Route: 048
     Dates: start: 20160404
  2. NICOTINAMIDE [Concomitant]
     Active Substance: NIACINAMIDE
  3. SPASFON                            /00765801/ [Concomitant]
     Active Substance: PHLOROGLUCINOL\1,3,5-TRIMETHOXYBENZENE
     Route: 065
     Dates: start: 20160209
  4. SPECIAFOLDINE [Concomitant]
     Active Substance: FOLIC ACID
     Route: 065
     Dates: start: 2003
  5. DEXERYL                            /00557601/ [Concomitant]
     Active Substance: CHLORPHENIRAMINE MALEATE\DEXTROMETHORPHAN HYDROBROMIDE\GUAIFENESIN\PHENYLEPHRINE HYDROCHLORIDE
     Route: 065
     Dates: start: 20141117
  6. DIPROSONE                          /00008502/ [Concomitant]
     Active Substance: BETAMETHASONE SODIUM PHOSPHATE
     Dosage: LOTION
     Route: 065
     Dates: start: 20160229
  7. PREVISCAN                          /00261401/ [Concomitant]
     Active Substance: PENTOXIFYLLINE
  8. STELARA [Suspect]
     Active Substance: USTEKINUMAB
     Indication: PSORIASIS
     Route: 058
     Dates: start: 20140630, end: 201601
  9. DIPROSONE                          /00008502/ [Concomitant]
     Active Substance: BETAMETHASONE SODIUM PHOSPHATE
     Route: 065
     Dates: start: 20160229
  10. FLAGYL [Concomitant]
     Active Substance: METRONIDAZOLE\METRONIDAZOLE HYDROCHLORIDE
     Route: 065
     Dates: start: 20171102
  11. METHOTREXATE. [Concomitant]
     Active Substance: METHOTREXATE
     Route: 048
     Dates: start: 2003
  12. OFLOCET                            /00731801/ [Concomitant]
     Active Substance: OFLOXACIN
     Route: 065
     Dates: start: 20160209
  13. PRINCIPEN [Concomitant]
     Active Substance: AMPICILLIN TRIHYDRATE
     Route: 065
     Dates: start: 20160209
  14. TRIDESONIT [Concomitant]
     Active Substance: DESONIDE
     Route: 065
     Dates: start: 20190107
  15. DERMOVAL                           /00008501/ [Concomitant]
     Active Substance: CLOBETASOL PROPIONATE
     Route: 065
     Dates: start: 20190701
  16. CREON [Concomitant]
     Active Substance: PANCRELIPASE AMYLASE\PANCRELIPASE LIPASE\PANCRELIPASE PROTEASE
     Route: 065
     Dates: start: 2016
  17. ROZEX (METRONIDAZOLE) [Concomitant]
     Active Substance: METRONIDAZOLE
  18. STELARA [Suspect]
     Active Substance: USTEKINUMAB
     Route: 058
     Dates: start: 20170123
  19. OTEZLA [Concomitant]
     Active Substance: APREMILAST
     Route: 048
     Dates: start: 20171211
  20. DAIVOBET [Concomitant]
     Active Substance: BETAMETHASONE DIPROPIONATE\CALCIPOTRIENE
     Route: 065
     Dates: start: 20140630
  21. DOLIPRANE [Concomitant]
     Active Substance: ACETAMINOPHEN
     Route: 065
     Dates: start: 20160209
  22. INNOHEP [Concomitant]
     Active Substance: TINZAPARIN SODIUM
     Route: 065
     Dates: start: 20180618
  23. AERIUS (DESLORATADINE) [Concomitant]
     Active Substance: DESLORATADINE
     Route: 065
     Dates: start: 20141117
  24. CORTANCYL [Concomitant]
     Active Substance: PREDNISONE
     Route: 065
     Dates: start: 201707
  25. BACTRIM [Concomitant]
     Active Substance: SULFAMETHOXAZOLE\TRIMETHOPRIM
     Route: 065
     Dates: start: 20171116

REACTIONS (3)
  - Pancreatitis chronic [Recovered/Resolved]
  - Gastric ulcer [Recovered/Resolved]
  - Bile duct stenosis [Recovered/Resolved]

NARRATIVE: CASE EVENT DATE: 20190904
